FAERS Safety Report 4847495-7 (Version None)
Quarter: 2005Q4

REPORT INFORMATION
  Report Type: 
  Country: None (occurrence: None)
  Receive Date: 20051205
  Receipt Date: 20051125
  Transmission Date: 20060501
  Serious: Yes (Hospitalization)
  Sender: FDA-Public Use
  Company Number: HQWYE648921NOV05

PATIENT
  Age: 61 Year
  Sex: Female

DRUGS (3)
  1. RAPAMUNE [Suspect]
     Indication: PROPHYLAXIS AGAINST TRANSPLANT REJECTION
     Dosage: 2 MG 1X PER 1 DAY
     Route: 048
     Dates: start: 20040801, end: 20050101
  2. AZATHIOPRINE [Suspect]
     Dosage: SEE IMAGE
  3. PREDNISONE TAB [Suspect]
     Dosage: SEE IMAGE

REACTIONS (13)
  - ANAEMIA [None]
  - CARBOHYDRATE ANTIGEN 125 INCREASED [None]
  - CARCINOEMBRYONIC ANTIGEN INCREASED [None]
  - DECREASED APPETITE [None]
  - DIARRHOEA [None]
  - GASTRITIS [None]
  - HIATUS HERNIA [None]
  - IMMUNOSUPPRESSANT DRUG LEVEL INCREASED [None]
  - MALNUTRITION [None]
  - OVERDOSE [None]
  - TOXOPLASMA SEROLOGY POSITIVE [None]
  - WEIGHT DECREASED [None]
  - WEIGHT INCREASED [None]
